FAERS Safety Report 13001679 (Version 1)
Quarter: 2016Q4

REPORT INFORMATION
  Report Type: Spontaneous
  Country: US (occurrence: US)
  Receive Date: 20161205
  Receipt Date: 20161205
  Transmission Date: 20170207
  Serious: Yes (Disabling)
  Sender: FDA-Public Use
  Company Number: None

PATIENT
  Age: 54 Year
  Sex: Male
  Weight: 90 kg

DRUGS (5)
  1. VIIBRYD [Concomitant]
     Active Substance: VILAZODONE HYDROCHLORIDE
  2. MULTIPLE [Concomitant]
  3. FISH OIL [Concomitant]
     Active Substance: FISH OIL
  4. ATORVASTATIN PFIZER [Suspect]
     Active Substance: ATORVASTATIN
     Indication: BLOOD CHOLESTEROL
     Dosage: ?          QUANTITY:1 TABLET(S);?
     Route: 048
     Dates: start: 20060823, end: 20160901
  5. D [Concomitant]

REACTIONS (3)
  - Arthralgia [None]
  - Myalgia [None]
  - Anxiety [None]

NARRATIVE: CASE EVENT DATE: 20060823
